FAERS Safety Report 11590280 (Version 1)
Quarter: 2015Q4

REPORT INFORMATION
  Report Type: Report from Study
  Country: BR (occurrence: BR)
  Receive Date: 20151002
  Receipt Date: 20151002
  Transmission Date: 20160304
  Serious: Yes (Other)
  Sender: FDA-Public Use
  Company Number: PHHY2015BR116199

PATIENT
  Sex: Female
  Weight: 113 kg

DRUGS (3)
  1. ASA [Suspect]
     Active Substance: ASPIRIN
     Indication: ABDOMINAL PAIN UPPER
     Dosage: UNK
     Route: 065
  2. DIOVAN [Suspect]
     Active Substance: VALSARTAN
     Indication: HYPERTENSION
     Dosage: 1 DF, QD (IN THE MORNING)
     Route: 065
     Dates: start: 2008
  3. DIOVAN [Suspect]
     Active Substance: VALSARTAN
     Indication: PERIPHERAL SWELLING

REACTIONS (4)
  - Cerebrovascular accident [Recovered/Resolved]
  - Heat oedema [Recovered/Resolved]
  - Blindness unilateral [Recovered/Resolved]
  - Peripheral swelling [Recovered/Resolved]
